FAERS Safety Report 16468736 (Version 1)
Quarter: 2019Q2

REPORT INFORMATION
  Report Type: Spontaneous
  Country: MX (occurrence: MX)
  Receive Date: 20190624
  Receipt Date: 20190624
  Transmission Date: 20190711
  Serious: Yes (Hospitalization)
  Sender: FDA-Public Use
  Company Number: MX-PERRIGO-19US007291

PATIENT
  Age: 15 Year
  Sex: Male

DRUGS (2)
  1. ALLERGY [Suspect]
     Active Substance: UNSPECIFIED INGREDIENT
     Indication: OVERDOSE
     Dosage: UNK, UNK
     Route: 048
  2. DEXTROMETHORPHAN [Suspect]
     Active Substance: DEXTROMETHORPHAN
     Indication: OVERDOSE
     Dosage: UNK, UNK
     Route: 048

REACTIONS (5)
  - Anxiety [Recovered/Resolved]
  - Delirium [Not Recovered/Not Resolved]
  - Palpitations [Recovered/Resolved]
  - Myoclonus [Recovered/Resolved]
  - Overdose [Recovered/Resolved]
